FAERS Safety Report 5573411-9 (Version None)
Quarter: 2007Q4

REPORT INFORMATION
  Report Type: 
  Country: None (occurrence: None)
  Receive Date: 20071226
  Receipt Date: 20071214
  Transmission Date: 20080405
  Serious: Yes (Other)
  Sender: FDA-Public Use
  Company Number: US-BAYER-200713640BCC

PATIENT
  Age: 82 Year
  Sex: Female
  Weight: 64 kg

DRUGS (2)
  1. ALEVE [Suspect]
     Indication: ARTHRALGIA
     Dosage: TOTAL DAILY DOSE: 220 MG  UNIT DOSE: 220 MG
     Route: 048
  2. TYLENOL [Concomitant]
     Indication: ARTHRITIS
     Route: 065

REACTIONS (2)
  - CONSTIPATION [None]
  - HAEMATOCHEZIA [None]
